FAERS Safety Report 6436945-0 (Version None)
Quarter: 2009Q4

REPORT INFORMATION
  Report Type: 
  Country: None (occurrence: None)
  Receive Date: 20091111
  Receipt Date: 20091104
  Transmission Date: 20100525
  Serious: Yes (Other)
  Sender: FDA-Public Use
  Company Number: GB-ABBOTT-09P-167-0607111-00

PATIENT
  Sex: Female
  Weight: 59 kg

DRUGS (2)
  1. HUMIRA [Suspect]
     Indication: RHEUMATOID ARTHRITIS
     Route: 058
     Dates: start: 20050209, end: 20061001
  2. LEFLUNOMIDE [Concomitant]
     Indication: DRUG USE FOR UNKNOWN INDICATION
     Dates: start: 20061004, end: 20070220

REACTIONS (3)
  - ABORTION SPONTANEOUS [None]
  - DRUG EXPOSURE DURING PREGNANCY [None]
  - PREGNANCY [None]
